FAERS Safety Report 19218270 (Version 21)
Quarter: 2023Q1

REPORT INFORMATION
  Report Type: Report from Study
  Country: KR (occurrence: None)
  Receive Date: 20210505
  Receipt Date: 20230116
  Transmission Date: 20230418
  Serious: Yes (Hospitalization)
  Sender: FDA-Public Use
  Company Number: KR-ROCHE-2802650

PATIENT
  Age: 61 Year
  Sex: Male
  Weight: 64.1 kg

DRUGS (89)
  1. TIRAGOLUMAB [Suspect]
     Active Substance: TIRAGOLUMAB
     Indication: Lung adenocarcinoma
     Dosage: ON 10/MAR/2021, MOST RECENT DOSE OF BLINDED MTIG 7192A PRIOR TO AE
     Route: 042
     Dates: start: 20201104
  2. ATEZOLIZUMAB [Suspect]
     Active Substance: ATEZOLIZUMAB
     Indication: Lung adenocarcinoma
     Dosage: ON 10/MAR/2021, MOST RECENT DOSE OF ATEZOLIZUMAB PRIOR TO AE, 1200 MG
     Route: 041
     Dates: start: 20201104
  3. TELMISARTAN [Concomitant]
     Active Substance: TELMISARTAN
     Indication: Hypertension
     Route: 048
     Dates: start: 2015, end: 20210310
  4. ASPIRIN [Concomitant]
     Active Substance: ASPIRIN
     Route: 048
     Dates: start: 2015
  5. ATORVASTATIN [Concomitant]
     Active Substance: ATORVASTATIN
     Indication: Hyperlipidaemia
     Route: 048
     Dates: start: 2015
  6. BEPOTASTINE BESYLATE [Concomitant]
     Active Substance: BEPOTASTINE BESYLATE
     Indication: Pruritus
     Route: 048
     Dates: start: 20201216, end: 20210629
  7. BEPOTASTINE BESYLATE [Concomitant]
     Active Substance: BEPOTASTINE BESYLATE
     Indication: Urticaria
     Route: 048
     Dates: start: 20220112, end: 20220222
  8. BEPOTASTINE BESYLATE [Concomitant]
     Active Substance: BEPOTASTINE BESYLATE
     Route: 048
     Dates: start: 20220628
  9. LEVOCETIRIZINE HYDROCHLORIDE [Concomitant]
     Active Substance: LEVOCETIRIZINE HYDROCHLORIDE
     Indication: Pruritus
     Route: 048
     Dates: start: 20210106, end: 20210629
  10. LEVOCETIRIZINE HYDROCHLORIDE [Concomitant]
     Active Substance: LEVOCETIRIZINE HYDROCHLORIDE
     Route: 048
     Dates: start: 20211229, end: 20220627
  11. CELECOXIB [Concomitant]
     Active Substance: CELECOXIB
     Indication: Arthritis
     Route: 048
     Dates: start: 20210218, end: 20210322
  12. CELECOXIB [Concomitant]
     Active Substance: CELECOXIB
     Route: 048
     Dates: start: 20210420, end: 20210511
  13. SODIUM CHLORIDE [Concomitant]
     Active Substance: SODIUM CHLORIDE
     Indication: Hypotension
     Route: 042
     Dates: start: 20210309, end: 20210309
  14. MUPIROCIN [Concomitant]
     Active Substance: MUPIROCIN
     Indication: Toxic erythema of chemotherapy
     Route: 061
     Dates: start: 20210311, end: 20210713
  15. DESOXIMETASONE [Concomitant]
     Active Substance: DESOXIMETASONE
     Indication: Toxic erythema of chemotherapy
     Route: 061
     Dates: start: 20210311, end: 20210713
  16. DESOXIMETASONE [Concomitant]
     Active Substance: DESOXIMETASONE
     Route: 061
     Dates: start: 20210915, end: 20211014
  17. DESOXIMETASONE [Concomitant]
     Active Substance: DESOXIMETASONE
     Route: 061
     Dates: start: 20220405
  18. UREA [Concomitant]
     Active Substance: UREA
     Indication: Toxic erythema of chemotherapy
     Route: 061
     Dates: start: 20210311, end: 20210914
  19. TRESTAN [Concomitant]
     Route: 048
     Dates: start: 20210312, end: 20210319
  20. ACETYLCYSTEINE [Concomitant]
     Active Substance: ACETYLCYSTEINE
     Route: 042
     Dates: start: 20210420, end: 20210420
  21. MEGESTROL ACETATE [Concomitant]
     Active Substance: MEGESTROL ACETATE
     Route: 048
     Dates: start: 20210310, end: 20210310
  22. HYDROCORTISONE [Concomitant]
     Active Substance: HYDROCORTISONE
     Indication: Rash
     Route: 061
     Dates: start: 20210331, end: 20210405
  23. LEVOFLOXACIN [Concomitant]
     Active Substance: LEVOFLOXACIN
     Indication: Pyrexia
     Route: 048
     Dates: start: 20210802, end: 20210811
  24. NAPROXEN [Concomitant]
     Active Substance: NAPROXEN
     Indication: Pyrexia
     Route: 048
     Dates: start: 20210802, end: 20210811
  25. NAPROXEN [Concomitant]
     Active Substance: NAPROXEN
     Route: 048
     Dates: start: 20220706, end: 20220719
  26. URSODIOL [Concomitant]
     Active Substance: URSODIOL
     Indication: Hepatitis
     Route: 048
     Dates: start: 20210809, end: 20211207
  27. URSODIOL [Concomitant]
     Active Substance: URSODIOL
     Route: 048
     Dates: start: 20211208, end: 20220726
  28. XEROVA SOLUTION [Concomitant]
     Indication: Dry mouth
     Dosage: 1 OTHER
     Route: 048
     Dates: start: 20210816, end: 20210824
  29. ULTRACET [Concomitant]
     Active Substance: ACETAMINOPHEN\TRAMADOL HYDROCHLORIDE
     Indication: Myalgia
     Dosage: 1 TABLET
     Route: 048
     Dates: start: 20210816, end: 20211026
  30. RUPATADINE [Concomitant]
     Active Substance: RUPATADINE
     Indication: Pruritus
     Route: 048
     Dates: start: 20210915, end: 20211019
  31. RUPATADINE [Concomitant]
     Active Substance: RUPATADINE
     Route: 048
     Dates: start: 20211027, end: 20211228
  32. RUPATADINE [Concomitant]
     Active Substance: RUPATADINE
     Route: 048
     Dates: start: 20211229, end: 20220627
  33. FEXOFENADINE HYDROCHLORIDE [Concomitant]
     Active Substance: FEXOFENADINE HYDROCHLORIDE
     Indication: Pruritus
     Route: 048
     Dates: start: 20210915, end: 20211019
  34. FEXOFENADINE HYDROCHLORIDE [Concomitant]
     Active Substance: FEXOFENADINE HYDROCHLORIDE
     Route: 048
     Dates: start: 20211027, end: 20211207
  35. ALLEGRA-D [Concomitant]
     Active Substance: FEXOFENADINE HYDROCHLORIDE\PSEUDOEPHEDRINE HYDROCHLORIDE
     Indication: Pruritus
     Dosage: 1 TABLET
     Route: 048
     Dates: start: 20211208, end: 20211228
  36. OLOPATADINE HYDROCHLORIDE [Concomitant]
     Active Substance: OLOPATADINE HYDROCHLORIDE
     Route: 048
     Dates: start: 20211229, end: 20220627
  37. EMEDASTINE DIFUMARATE [Concomitant]
     Active Substance: EMEDASTINE DIFUMARATE
     Indication: Urticaria
     Route: 048
     Dates: start: 20211229, end: 20220627
  38. EMEDASTINE DIFUMARATE [Concomitant]
     Active Substance: EMEDASTINE DIFUMARATE
     Route: 048
     Dates: start: 20211229, end: 20220321
  39. EBASTINE [Concomitant]
     Active Substance: EBASTINE
     Route: 048
     Dates: start: 20211229
  40. HYDROXYZINE HYDROCHLORIDE [Concomitant]
     Active Substance: HYDROXYZINE HYDROCHLORIDE
     Indication: Pruritus
     Route: 048
     Dates: start: 20211229, end: 20220222
  41. HYDROXYZINE HYDROCHLORIDE [Concomitant]
     Active Substance: HYDROXYZINE HYDROCHLORIDE
     Indication: Neurodermatitis
     Route: 048
     Dates: start: 20220223, end: 20220308
  42. HYDROXYZINE HYDROCHLORIDE [Concomitant]
     Active Substance: HYDROXYZINE HYDROCHLORIDE
     Indication: Urticaria
     Route: 048
     Dates: start: 20220223, end: 20220308
  43. HYDROXYZINE HYDROCHLORIDE [Concomitant]
     Active Substance: HYDROXYZINE HYDROCHLORIDE
     Route: 048
     Dates: start: 20220405
  44. HYDROXYZINE HYDROCHLORIDE [Concomitant]
     Active Substance: HYDROXYZINE HYDROCHLORIDE
     Route: 048
     Dates: start: 20220322, end: 20220404
  45. HYDROXYZINE HYDROCHLORIDE [Concomitant]
     Active Substance: HYDROXYZINE HYDROCHLORIDE
     Route: 048
     Dates: start: 20220322
  46. HYDROXYZINE HYDROCHLORIDE [Concomitant]
     Active Substance: HYDROXYZINE HYDROCHLORIDE
     Route: 048
     Dates: start: 20220628, end: 20221128
  47. HYDROXYZINE HYDROCHLORIDE [Concomitant]
     Active Substance: HYDROXYZINE HYDROCHLORIDE
     Route: 048
     Dates: start: 20221129
  48. PREDNISOLONE [Concomitant]
     Active Substance: PREDNISOLONE
     Indication: Urticaria
     Route: 048
     Dates: start: 20220119, end: 20220125
  49. PREDNISOLONE [Concomitant]
     Active Substance: PREDNISOLONE
     Indication: Dermatitis contact
     Route: 048
     Dates: start: 20220126, end: 20220216
  50. PREDNISOLONE [Concomitant]
     Active Substance: PREDNISOLONE
     Route: 048
     Dates: start: 20220531
  51. PREDNISOLONE [Concomitant]
     Active Substance: PREDNISOLONE
     Route: 048
     Dates: start: 20220209, end: 20220215
  52. CLOBETASOL [Concomitant]
     Active Substance: CLOBETASOL
     Route: 061
     Dates: start: 20220209, end: 20220222
  53. METHYLPREDNISOLONE ACEPONATE [Concomitant]
     Active Substance: METHYLPREDNISOLONE ACEPONATE
     Indication: Pruritus
     Route: 061
     Dates: start: 20220209, end: 20220222
  54. METHYLPREDNISOLONE ACEPONATE [Concomitant]
     Active Substance: METHYLPREDNISOLONE ACEPONATE
     Route: 061
     Dates: start: 20220322
  55. TELMISARTAN [Concomitant]
     Active Substance: TELMISARTAN
     Route: 048
     Dates: start: 20210312
  56. KERIUM [Concomitant]
     Route: 065
     Dates: start: 20220419, end: 20220627
  57. MINOCYCLINE [Concomitant]
     Active Substance: MINOCYCLINE HYDROCHLORIDE
     Indication: Urticaria
     Route: 048
     Dates: start: 20220517, end: 20220627
  58. DEXLANSOPRAZOLE [Concomitant]
     Active Substance: DEXLANSOPRAZOLE
     Indication: Gastrooesophageal reflux disease
     Route: 048
     Dates: start: 20220525, end: 20221102
  59. CLOBETASOL PROPIONATE [Concomitant]
     Active Substance: CLOBETASOL PROPIONATE
     Dates: start: 20220531
  60. KETOTIFEN [Concomitant]
     Active Substance: KETOTIFEN
     Indication: Pruritus
     Route: 048
     Dates: start: 20220223, end: 20220627
  61. DEXAMETHASONE [Concomitant]
     Active Substance: DEXAMETHASONE
     Indication: Neurodermatitis
     Route: 042
     Dates: start: 20220628, end: 20220628
  62. DEXAMETHASONE [Concomitant]
     Active Substance: DEXAMETHASONE
     Route: 042
     Dates: start: 20220712, end: 20220712
  63. CHLORPHENIRAMINE MALEATE [Concomitant]
     Active Substance: CHLORPHENIRAMINE MALEATE
     Indication: Neurodermatitis
     Route: 048
     Dates: start: 20220628, end: 20220711
  64. CHLORPHENIRAMINE MALEATE [Concomitant]
     Active Substance: CHLORPHENIRAMINE MALEATE
     Route: 048
     Dates: start: 20220712, end: 20221128
  65. CHLORPHENIRAMINE MALEATE [Concomitant]
     Active Substance: CHLORPHENIRAMINE MALEATE
     Route: 030
     Dates: start: 20220726, end: 20220726
  66. CHLORPHENIRAMINE MALEATE [Concomitant]
     Active Substance: CHLORPHENIRAMINE MALEATE
     Route: 030
     Dates: start: 20220907, end: 20220907
  67. CHLORPHENIRAMINE MALEATE [Concomitant]
     Active Substance: CHLORPHENIRAMINE MALEATE
     Route: 030
     Dates: start: 20220906, end: 20220906
  68. CHLORPHENIRAMINE MALEATE [Concomitant]
     Active Substance: CHLORPHENIRAMINE MALEATE
     Route: 048
     Dates: start: 20221004, end: 20221004
  69. DESOXYONE [Concomitant]
     Indication: Neurodermatitis
     Dosage: DOSE: 1 PUFF
     Route: 061
     Dates: start: 20220712, end: 20220725
  70. INSULIN DEGLUDEC [Concomitant]
     Active Substance: INSULIN DEGLUDEC
     Indication: Hyperglycaemia
     Route: 058
     Dates: start: 20220819, end: 20220822
  71. INSULIN DEGLUDEC [Concomitant]
     Active Substance: INSULIN DEGLUDEC
     Route: 058
     Dates: start: 20220823, end: 20220830
  72. INSULIN ASPART [Concomitant]
     Active Substance: INSULIN ASPART
     Indication: Hyperglycaemia
     Route: 058
     Dates: start: 20220819, end: 20220822
  73. METFORMIN HYDROCHLORIDE [Concomitant]
     Active Substance: METFORMIN HYDROCHLORIDE
     Indication: Hyperglycaemia
     Dates: start: 20220823
  74. SITAGLIPTIN [Concomitant]
     Active Substance: SITAGLIPTIN
     Indication: Hyperglycaemia
     Route: 048
     Dates: start: 20220823, end: 20220830
  75. GLIMEPIRIDE [Concomitant]
     Active Substance: GLIMEPIRIDE
     Indication: Hyperglycaemia
     Route: 048
     Dates: start: 20220823, end: 20221010
  76. GEMIGLIPTIN [Concomitant]
     Active Substance: GEMIGLIPTIN
     Indication: Hyperglycaemia
     Route: 048
     Dates: start: 20220831
  77. CHLORPHENIRAMINE [Concomitant]
     Active Substance: CHLORPHENIRAMINE
     Indication: Neurodermatitis
     Route: 030
     Dates: start: 20220726, end: 20220726
  78. CHLORPHENIRAMINE [Concomitant]
     Active Substance: CHLORPHENIRAMINE
     Route: 030
     Dates: start: 20220809, end: 20220809
  79. CLOBEX [Concomitant]
     Active Substance: CLOBETASOL PROPIONATE
     Route: 061
     Dates: start: 20220726, end: 20220809
  80. VAXIGRIPTETRA [Concomitant]
     Active Substance: INFLUENZA VIRUS VACCINE QUADRIVALENT TYPE A+B
     Indication: Influenza immunisation
     Route: 030
     Dates: start: 20221004, end: 20221004
  81. LOPERAMIDE [Concomitant]
     Active Substance: LOPERAMIDE
     Indication: Diarrhoea
     Route: 048
     Dates: start: 20221019, end: 20221020
  82. LOPERAMIDE [Concomitant]
     Active Substance: LOPERAMIDE
     Route: 048
     Dates: start: 20221026, end: 20221030
  83. PINAVERIUM BROMIDE [Concomitant]
     Active Substance: PINAVERIUM BROMIDE
     Indication: Diarrhoea
     Route: 048
     Dates: start: 20221019, end: 20221020
  84. METHYLPREDNISOLONE [Concomitant]
     Active Substance: METHYLPREDNISOLONE
     Indication: Diarrhoea
     Route: 048
     Dates: start: 20221021, end: 20221025
  85. LECLEAN [Concomitant]
     Route: 054
     Dates: start: 20221024, end: 20221024
  86. TIROPRAMIDE [Concomitant]
     Active Substance: TIROPRAMIDE
     Indication: Colitis
     Route: 048
     Dates: start: 20221024, end: 20221101
  87. TIROPRAMIDE [Concomitant]
     Active Substance: TIROPRAMIDE
     Route: 048
     Dates: start: 20221102, end: 20221129
  88. TRIAMCINOLONE ACETONIDE [Concomitant]
     Active Substance: TRIAMCINOLONE ACETONIDE
     Indication: Eczema
     Route: 030
     Dates: start: 20221129, end: 20221129
  89. LOPERAMIDE HYDROCHLORIDE [Concomitant]
     Active Substance: LOPERAMIDE HYDROCHLORIDE
     Indication: Diarrhoea
     Route: 048
     Dates: start: 20221130, end: 20221220

REACTIONS (1)
  - Adrenal insufficiency [Recovered/Resolved]

NARRATIVE: CASE EVENT DATE: 20210310
